FAERS Safety Report 18646137 (Version 1)
Quarter: 2020Q4

REPORT INFORMATION
  Report Type: Spontaneous
  Country: US (occurrence: US)
  Receive Date: 20201222
  Receipt Date: 20201222
  Transmission Date: 20210114
  Serious: Yes (Other)
  Sender: FDA-Public Use
  Company Number: US-ALXN-A202018759

PATIENT
  Age: 21 Year
  Sex: Female

DRUGS (2)
  1. ULTOMIRIS [Suspect]
     Active Substance: RAVULIZUMAB-CWVZ
     Indication: PAROXYSMAL NOCTURNAL HAEMOGLOBINURIA
     Dosage: UNK
     Route: 065
  2. ULTOMIRIS [Suspect]
     Active Substance: RAVULIZUMAB-CWVZ
     Dosage: UNK, EVERY 8 WEEKS
     Route: 065

REACTIONS (7)
  - Nasal congestion [Recovering/Resolving]
  - Pyrexia [Recovered/Resolved]
  - SARS-CoV-2 test positive [Recovering/Resolving]
  - COVID-19 [Recovering/Resolving]
  - Anosmia [Recovering/Resolving]
  - Headache [Recovered/Resolved]
  - Ageusia [Recovering/Resolving]

NARRATIVE: CASE EVENT DATE: 20201203
